FAERS Safety Report 4719863-5 (Version None)
Quarter: 2005Q3

REPORT INFORMATION
  Report Type: 
  Country: None (occurrence: None)
  Receive Date: 20050721
  Receipt Date: 20041215
  Transmission Date: 20060218
  Serious: No
  Sender: FDA-Public Use
  Company Number: US-GLAXOSMITHKLINE-A0537451A

PATIENT
  Age: 59 Year
  Sex: Female

DRUGS (3)
  1. AVANDIA [Suspect]
     Dosage: 8MG PER DAY
     Route: 048
     Dates: start: 20031203
  2. ENALAPRIL [Concomitant]
  3. AMARYL [Concomitant]

REACTIONS (1)
  - MYALGIA [None]
